FAERS Safety Report 20899239 (Version 1)
Quarter: 2022Q2

REPORT INFORMATION
  Report Type: Spontaneous
  Country: IN (occurrence: IN)
  Receive Date: 20220601
  Receipt Date: 20220601
  Transmission Date: 20220720
  Serious: Yes (Other)
  Sender: FDA-Public Use
  Company Number: IN-ALKEM LABORATORIES LIMITED-IN-ALKEM-2022-05206

PATIENT

DRUGS (1)
  1. ISONIAZID [Suspect]
     Active Substance: ISONIAZID
     Indication: Pulmonary tuberculosis
     Dosage: 600 MILLIGRAM AS A PART OF CAT I THRICE WEEKLY
     Route: 065

REACTIONS (1)
  - Seizure [Unknown]
